FAERS Safety Report 8346347-8 (Version None)
Quarter: 2012Q2

REPORT INFORMATION
  Report Type: 
  Country: None (occurrence: None)
  Receive Date: 20120509
  Receipt Date: 20120427
  Transmission Date: 20120825
  Serious: Yes (Other)
  Sender: FDA-Public Use
  Company Number: US-PFIZER INC-2011052202

PATIENT
  Sex: Female
  Weight: 67 kg

DRUGS (16)
  1. CRIZOTINIB [Suspect]
     Indication: NON-SMALL CELL LUNG CANCER
     Dosage: 250 MG, 2X/DAY
     Route: 048
     Dates: start: 20110204, end: 20110308
  2. SYNTHROID [Concomitant]
     Indication: HYPOTHYROIDISM
     Dosage: 0.88 UG, 1X/DAY
     Route: 048
     Dates: start: 19520101
  3. ESTRING HORMONE [Concomitant]
     Indication: VULVOVAGINAL DRYNESS
     Dosage: QUARTERLY
     Dates: start: 20080101
  4. TEKTURNA [Suspect]
     Indication: HYPERTENSION
     Dosage: 300 MG, 1X/DAY
     Route: 048
     Dates: start: 20100501
  5. AVAPRO [Concomitant]
     Indication: HYPERTENSION
     Dosage: 300 MG, 1X/DAY
     Route: 048
     Dates: start: 20100501, end: 20110207
  6. ZYRTEC [Concomitant]
     Indication: HYPERSENSITIVITY
     Dosage: 1 TAB, PRN
     Route: 048
     Dates: start: 20110218, end: 20110221
  7. TRIAMCINOLONE [Concomitant]
     Indication: RASH
     Dosage: 0.1%, BID PRN
     Route: 061
     Dates: start: 20110218
  8. VITAMIN D [Concomitant]
     Indication: VITAMIN SUPPLEMENTATION
     Dosage: 1000 MG, 1X/DAY
     Route: 048
     Dates: start: 20100901
  9. LORAZEPAM [Concomitant]
     Indication: INSOMNIA
     Dosage: 0.5-1 MG, PRN HS
     Route: 048
     Dates: start: 20100101
  10. FOLIC ACID [Concomitant]
     Indication: SUPPLEMENTATION THERAPY
     Dosage: 1 MG, 1X/DAY
     Route: 048
     Dates: start: 20090901
  11. SIMVASTATIN [Concomitant]
     Indication: BLOOD CHOLESTEROL INCREASED
     Dosage: 10 MG, 1X/DAY
     Route: 048
     Dates: start: 20080101
  12. NAPROXEN (ALEVE) [Concomitant]
     Indication: ARTHRALGIA
     Dosage: 200 MG, Q4 PRN
     Route: 048
     Dates: start: 20101201
  13. DIOVAN [Suspect]
     Indication: HYPERTENSION
     Dosage: 160 MG, 1X/DAY
     Route: 048
     Dates: start: 20110207, end: 20110314
  14. CO-Q-10 [Concomitant]
     Indication: ISCHAEMIC HEART DISEASE PROPHYLAXIS
     Dosage: 100 MG, 1X/DAY
     Route: 048
     Dates: start: 20090101, end: 20090101
  15. CALCIUM WITH VITAMIN D [Concomitant]
     Indication: VITAMIN SUPPLEMENTATION
     Dosage: 600 MG/ 460 ML, QD
     Route: 048
     Dates: start: 19800101
  16. MUCINEX [Concomitant]
     Indication: COUGH
     Dosage: 1 TAB, AS NEEDED
     Route: 048
     Dates: start: 20110101

REACTIONS (1)
  - HYPONATRAEMIA [None]
